FAERS Safety Report 8137980-7 (Version None)
Quarter: 2012Q1

REPORT INFORMATION
  Report Type: 
  Country: None (occurrence: None)
  Receive Date: 20120215
  Receipt Date: 20120213
  Transmission Date: 20120608
  Serious: Yes (Hospitalization)
  Sender: FDA-Public Use
  Company Number: US-PFIZER INC-2012039344

PATIENT
  Sex: Female
  Weight: 104 kg

DRUGS (4)
  1. PROPAFENONE HCL [Suspect]
     Indication: PALPITATIONS
     Dosage: 225 MG, 3X/DAY
     Dates: start: 20110101
  2. CARTIA XT [Suspect]
     Indication: PALPITATIONS
     Dosage: 240 MG, DAILY
     Dates: start: 20110101
  3. CELEBREX [Suspect]
     Indication: ARTHRITIS
     Dosage: 200 MG, DAILY
     Route: 048
  4. FAMOTIDINE [Concomitant]
     Indication: ABDOMINAL DISCOMFORT
     Dosage: 20 MG, 2X/DAY

REACTIONS (5)
  - DYSPNOEA [None]
  - FEELING ABNORMAL [None]
  - PALPITATIONS [None]
  - CARDIAC DISORDER [None]
  - MALAISE [None]
